FAERS Safety Report 9912126 (Version 2)
Quarter: 2014Q1

REPORT INFORMATION
  Report Type: Report from Study
  Country: US (occurrence: US)
  Receive Date: 20140219
  Receipt Date: 20140312
  Transmission Date: 20141002
  Serious: Yes (Hospitalization)
  Sender: FDA-Public Use
  Company Number: US-BRISTOL-MYERS SQUIBB COMPANY-20173191

PATIENT
  Sex: Female

DRUGS (6)
  1. ARIPIPRAZOLE [Suspect]
     Indication: DEPRESSION
     Dosage: LAST DATE STUDY DRUG TAKEN:06JAN14
     Route: 048
     Dates: start: 20130424
  2. CITALOPRAM [Concomitant]
  3. TRAZODONE HCL [Concomitant]
  4. ACETAMINOPHEN [Concomitant]
  5. ALBUTEROL [Concomitant]
  6. OMEPRAZOLE [Concomitant]

REACTIONS (2)
  - Cellulitis [Recovered/Resolved]
  - Bronchiolitis [Recovered/Resolved]
